FAERS Safety Report 19585881 (Version 4)
Quarter: 2022Q1

REPORT INFORMATION
  Report Type: Report from Study
  Country: FR (occurrence: FR)
  Receive Date: 20210720
  Receipt Date: 20220126
  Transmission Date: 20220424
  Serious: Yes (Death, Hospitalization)
  Sender: FDA-Public Use
  Company Number: FR-009507513-2106FRA002706

PATIENT
  Age: 69 Year
  Sex: Male
  Weight: 69 kg

DRUGS (16)
  1. PEMBROLIZUMAB [Suspect]
     Active Substance: PEMBROLIZUMAB
     Indication: Squamous cell carcinoma
     Dosage: 200 MILLIGRAM
     Route: 042
     Dates: start: 20210414, end: 20210526
  2. PEMBROLIZUMAB [Suspect]
     Active Substance: PEMBROLIZUMAB
     Dosage: UNK
     Route: 042
     Dates: start: 20210616, end: 20210616
  3. VORINOSTAT [Suspect]
     Active Substance: VORINOSTAT
     Indication: Squamous cell carcinoma
     Dosage: 300 MILLIGRAM
     Dates: start: 20210414, end: 20210603
  4. VORINOSTAT [Suspect]
     Active Substance: VORINOSTAT
     Dosage: 300 UNK
     Dates: start: 20210616, end: 20210616
  5. DAPTOMYCIN [Suspect]
     Active Substance: DAPTOMYCIN
     Dosage: UNK
     Dates: start: 20210605, end: 20210606
  6. CEFAZOLIN [Suspect]
     Active Substance: CEFAZOLIN
     Dosage: UNK
     Dates: start: 20210605
  7. GENTAMICIN [Suspect]
     Active Substance: GENTAMICIN
     Dosage: UNK
     Dates: start: 20210605, end: 20210605
  8. VANCOMYCIN [Suspect]
     Active Substance: VANCOMYCIN
     Dosage: UNK
     Dates: start: 20210605
  9. FUROSEMIDE [Concomitant]
     Active Substance: FUROSEMIDE
     Indication: Hypertension
     Dosage: 20 MILLIGRAM, QD
     Dates: start: 2010
  10. BISOPROLOL [Concomitant]
     Active Substance: BISOPROLOL
     Indication: Hypertension
     Dosage: 5 MILLIGRAM, QD
     Dates: start: 2010
  11. PERINDOPRIL [Concomitant]
     Active Substance: PERINDOPRIL
     Indication: Hypertension
     Dosage: 8 MILLIGRAM, QD
     Dates: start: 2010
  12. ALLOPURINOL [Concomitant]
     Active Substance: ALLOPURINOL
     Indication: Gout
     Dosage: 100 MILLIGRAM, QD
     Dates: start: 2019
  13. XARELTO [Concomitant]
     Active Substance: RIVAROXABAN
     Indication: Arrhythmia
     Dosage: 20 MILLIGRAM, QD
     Dates: start: 2010
  14. LEVOTHYROXINE [Concomitant]
     Active Substance: LEVOTHYROXINE
     Indication: Hypothyroidism
     Dosage: 50 MILLIGRAM, QD
     Dates: start: 2016
  15. ZOLPIDEM TARTRATE [Concomitant]
     Active Substance: ZOLPIDEM TARTRATE
     Dosage: 10 MILLIGRAM, QD
  16. KARDEGIC [Concomitant]
     Active Substance: ASPIRIN DL-LYSINE
     Dosage: 75 MILLIGRAM, QD

REACTIONS (2)
  - Malignant neoplasm progression [Fatal]
  - Device related infection [Recovered/Resolved]

NARRATIVE: CASE EVENT DATE: 20210607
